FAERS Safety Report 20975751 (Version 1)
Quarter: 2022Q2

REPORT INFORMATION
  Report Type: Spontaneous
  Country: US (occurrence: None)
  Receive Date: 20220617
  Receipt Date: 20220617
  Transmission Date: 20220721
  Serious: Yes (Disabling)
  Sender: FDA-Public Use
  Company Number: None

PATIENT
  Age: 36 Year
  Sex: Female
  Weight: 49.5 kg

DRUGS (1)
  1. TRIKAFTA [Suspect]
     Active Substance: ELEXACAFTOR\IVACAFTOR\TEZACAFTOR
     Indication: Cystic fibrosis
     Dosage: OTHER QUANTITY : 3 TABLET(S);?FREQUENCY : TWICE A DAY;?
     Route: 048

REACTIONS (12)
  - Acne [None]
  - Anxiety [None]
  - Panic attack [None]
  - Breast swelling [None]
  - Breast inflammation [None]
  - Muscle spasms [None]
  - Abdominal distension [None]
  - Heavy menstrual bleeding [None]
  - Rash [None]
  - Progesterone decreased [None]
  - Acne cystic [None]
  - Blood oestrogen abnormal [None]
